FAERS Safety Report 10679795 (Version 2)
Quarter: 2014Q4

REPORT INFORMATION
  Report Type: Spontaneous
  Country: BR (occurrence: BR)
  Receive Date: 20141229
  Receipt Date: 20141229
  Transmission Date: 20150529
  Serious: Yes (Other)
  Sender: FDA-Public Use
  Company Number: PHHY2013BR109457

PATIENT
  Age: 82 Year
  Sex: Male
  Weight: 70 kg

DRUGS (6)
  1. LEVOID [Concomitant]
     Active Substance: LEVOTHYROXINE
     Indication: HYPERTHYROIDISM
     Dosage: 1 DF, DAILY
     Route: 048
  2. EXELON PATCH [Suspect]
     Active Substance: RIVASTIGMINE
     Dosage: 4.6 MG, QOD (APPLY THE ADHESIVE IN ALTERNATE DAYS)
     Route: 062
  3. GALVUS [Suspect]
     Active Substance: VILDAGLIPTIN
     Indication: DIABETES MELLITUS
     Dosage: 1 DF, QD (ONE TABLET PER DAY)
     Route: 048
  4. DIAMICRON [Concomitant]
     Active Substance: GLICLAZIDE
     Indication: DIABETES MELLITUS
     Dosage: 1 DF, BID
     Route: 048
  5. EXELON PATCH [Suspect]
     Active Substance: RIVASTIGMINE
     Indication: DEMENTIA ALZHEIMER^S TYPE
     Dosage: 4.6 MG, 1 ADHESIVE DAILY
     Route: 062
     Dates: start: 20130925
  6. FINASTIL [Concomitant]
     Indication: PROSTATOMEGALY
     Dosage: 1 DF, DAILY
     Route: 048

REACTIONS (4)
  - Libido increased [Not Recovered/Not Resolved]
  - Dizziness [Recovered/Resolved]
  - Headache [Recovered/Resolved]
  - Nasopharyngitis [Recovered/Resolved]

NARRATIVE: CASE EVENT DATE: 20130925
